FAERS Safety Report 7377377-0 (Version None)
Quarter: 2011Q1

REPORT INFORMATION
  Report Type: 
  Country: None (occurrence: None)
  Receive Date: 20110328
  Receipt Date: 20110323
  Transmission Date: 20110831
  Serious: No
  Sender: FDA-Public Use
  Company Number: US-PFIZER INC-2011065726

PATIENT
  Sex: Male
  Weight: 136 kg

DRUGS (2)
  1. VIAGRA [Suspect]
     Indication: ERECTILE DYSFUNCTION
     Dosage: 500 MG, 10X/DAY
     Dates: start: 20060101
  2. CIALIS [Concomitant]
     Dosage: UNK

REACTIONS (2)
  - GASTROINTESTINAL DISORDER [None]
  - INTENTIONAL DRUG MISUSE [None]
